FAERS Safety Report 8143587-8 (Version None)
Quarter: 2012Q1

REPORT INFORMATION
  Report Type: 
  Country: None (occurrence: None)
  Receive Date: 20120217
  Receipt Date: 20111110
  Transmission Date: 20120608
  Serious: No
  Sender: FDA-Public Use
  Company Number: US-GLAXOSMITHKLINE-A0953500A

PATIENT
  Age: 68 Year
  Sex: Male

DRUGS (2)
  1. VOTRIENT [Suspect]
     Dosage: 400MG TWICE PER DAY
     Route: 048
     Dates: start: 20110721
  2. CIMETIDINE [Concomitant]

REACTIONS (5)
  - FATIGUE [None]
  - DIARRHOEA [None]
  - FLATULENCE [None]
  - DYSGEUSIA [None]
  - CONSTIPATION [None]
